FAERS Safety Report 19686147 (Version 1)
Quarter: 2021Q3

REPORT INFORMATION
  Report Type: Spontaneous
  Country: US (occurrence: US)
  Receive Date: 20210811
  Receipt Date: 20210811
  Transmission Date: 20211014
  Serious: No
  Sender: FDA-Public Use
  Company Number: US-PERRIGO-21US002955

PATIENT
  Age: 63 Year
  Sex: Male
  Weight: 90.7 kg

DRUGS (5)
  1. CLONAZEPAM. [Concomitant]
     Active Substance: CLONAZEPAM
     Indication: ANXIETY
     Dosage: UNKNOWN, UNKNWON
     Route: 065
  2. LORATADINE. [Suspect]
     Active Substance: LORATADINE
     Indication: RHINITIS ALLERGIC
     Dosage: 1/2 TABLET, NIGHTLY
     Route: 048
     Dates: start: 20210221, end: 20210223
  3. FENTAZIN [Concomitant]
     Indication: DEPRESSION
     Dosage: UNKNOWN, UNKNOWN
     Route: 065
  4. LORATADINE. [Suspect]
     Active Substance: LORATADINE
     Indication: SEASONAL ALLERGY
  5. NEFAZODONE [Concomitant]
     Active Substance: NEFAZODONE
     Indication: DEPRESSION
     Dosage: UNKNOWN, UNKNOWN
     Route: 065

REACTIONS (7)
  - Dry mouth [Recovered/Resolved]
  - Drug ineffective [Unknown]
  - Insomnia [Recovered/Resolved]
  - Wrong technique in product usage process [Recovered/Resolved]
  - Wheezing [Recovered/Resolved]
  - Underdose [Recovered/Resolved]
  - Choking sensation [Recovered/Resolved]

NARRATIVE: CASE EVENT DATE: 20210221
